FAERS Safety Report 5364108-9 (Version None)
Quarter: 2007Q2

REPORT INFORMATION
  Report Type: 
  Country: None (occurrence: None)
  Receive Date: 20070620
  Receipt Date: 20070606
  Transmission Date: 20071010
  Serious: Yes (Hospitalization)
  Sender: FDA-Public Use
  Company Number: US-PURDUE-USA_2007_0027787

PATIENT
  Sex: Female

DRUGS (6)
  1. UNIPHYL TABLETS [Suspect]
     Indication: DYSPNOEA
     Dosage: 400 MG, DAILY
  2. UNIPHYL TABLETS [Suspect]
     Dosage: 400 MG, BID
  3. FORADIL [Concomitant]
     Indication: DYSPNOEA
     Route: 055
  4. SALBUTAMOL W/IPRATROPIUM [Concomitant]
     Indication: DYSPNOEA
     Route: 055
  5. SINGULAIR [Concomitant]
     Indication: SEASONAL ALLERGY
     Route: 048
  6. AZMACORT [Concomitant]
     Indication: DYSPNOEA
     Route: 055

REACTIONS (3)
  - DRUG INEFFECTIVE [None]
  - DYSPNOEA [None]
  - MEDICATION RESIDUE [None]
